FAERS Safety Report 26055236 (Version 1)
Quarter: 2025Q4

REPORT INFORMATION
  Report Type: Spontaneous
  Country: US (occurrence: US)
  Receive Date: 20251117
  Receipt Date: 20251117
  Transmission Date: 20260117
  Serious: Yes (Hospitalization, Other)
  Sender: ELI LILLY AND COMPANY
  Company Number: US-ELI_LILLY_AND_COMPANY-US202511010797

PATIENT
  Age: 55 Year
  Sex: Female

DRUGS (4)
  1. ZEPBOUND [Interacting]
     Active Substance: TIRZEPATIDE
     Indication: Weight control
     Dosage: 2.5 MG, UNKNOWN
     Route: 065
     Dates: start: 20250609, end: 20250804
  2. ZEPBOUND [Interacting]
     Active Substance: TIRZEPATIDE
     Indication: Weight control
     Dosage: 2.5 MG, UNKNOWN
     Route: 065
     Dates: start: 20250609, end: 20250804
  3. SERTRALINE [Interacting]
     Active Substance: SERTRALINE HYDROCHLORIDE
     Indication: Panic disorder
     Dosage: UNK UNK, UNKNOWN
     Route: 065
     Dates: start: 201901
  4. SERTRALINE [Interacting]
     Active Substance: SERTRALINE HYDROCHLORIDE
     Indication: Post-traumatic stress disorder

REACTIONS (3)
  - Panic attack [Recovered/Resolved]
  - Blood glucose decreased [Recovered/Resolved]
  - Drug interaction [Unknown]

NARRATIVE: CASE EVENT DATE: 20250612
